FAERS Safety Report 7446510-4 (Version None)
Quarter: 2011Q2

REPORT INFORMATION
  Report Type: 
  Country: None (occurrence: None)
  Receive Date: 20110429
  Receipt Date: 20100708
  Transmission Date: 20111010
  Serious: No
  Sender: FDA-Public Use
  Company Number: US-ASTRAZENECA-2010SE31763

PATIENT
  Sex: Female
  Weight: 48.5 kg

DRUGS (5)
  1. NEXIUM [Suspect]
     Indication: ABDOMINAL PAIN UPPER
     Route: 048
     Dates: start: 20100630
  2. MIRULAX [Concomitant]
     Indication: CONSTIPATION
  3. LEXAPRO [Concomitant]
     Indication: DEPRESSION
  4. NEXIUM [Suspect]
     Indication: FLATULENCE
     Route: 048
     Dates: start: 20100630
  5. LEVOXYL [Concomitant]
     Indication: THYROID DISORDER

REACTIONS (3)
  - DRUG INEFFECTIVE [None]
  - INCORRECT DOSE ADMINISTERED [None]
  - CONSTIPATION [None]
